FAERS Safety Report 9988867 (Version 4)
Quarter: 2014Q2

REPORT INFORMATION
  Report Type: Report from Study
  Country: US (occurrence: US)
  Receive Date: 20140310
  Receipt Date: 20140530
  Transmission Date: 20141212
  Serious: Yes (Death, Hospitalization, Other)
  Sender: FDA-Public Use
  Company Number: US-DENDREON CORPORATION-2014PROUSA03553

PATIENT
  Age: 81 Year
  Sex: Male
  Weight: 68.27 kg

DRUGS (10)
  1. SIPULEUCEL-T [Suspect]
     Indication: PROSTATE CANCER METASTATIC
     Dosage: 250 ML, SINGLE
     Route: 042
     Dates: start: 20131024, end: 20131024
  2. SIPULEUCEL-T [Suspect]
     Dosage: 250 ML, SINGLE
     Route: 042
     Dates: start: 20131107, end: 20131107
  3. SIPULEUCEL-T [Suspect]
     Dosage: 250 ML, SINGLE
     Route: 042
     Dates: start: 20131121, end: 20131121
  4. LUPRON [Concomitant]
     Indication: PROSTATE CANCER
     Dosage: 22.5 MG, UNK
     Route: 030
  5. BICALUTAMIDE [Concomitant]
     Indication: PROSTATE CANCER
     Dosage: 50 MG, QD FOR 90 DAYS
     Route: 048
  6. XGEVA [Concomitant]
     Indication: PROSTATE CANCER
     Dosage: 120 MG/1.7ML, EVERY 4 WEEKS
     Route: 058
     Dates: start: 201307
  7. ASPIRIN [Concomitant]
     Indication: ANTICOAGULANT THERAPY
     Dosage: 81 MG, UNK
  8. TAMSULOSIN [Concomitant]
     Indication: PRODUCT USED FOR UNKNOWN INDICATION
     Dosage: 0.4 MG, QD
     Route: 048
  9. FUROSEMIDE [Concomitant]
     Indication: PRODUCT USED FOR UNKNOWN INDICATION
     Dosage: 20 MG, UNK
  10. HYDROCODONE BITARTRATE AND ACETAMINOPHEN [Concomitant]
     Indication: PRODUCT USED FOR UNKNOWN INDICATION

REACTIONS (5)
  - Disease progression [Fatal]
  - Jaundice [Not Recovered/Not Resolved]
  - Dehydration [Recovered/Resolved with Sequelae]
  - Failure to thrive [Recovered/Resolved with Sequelae]
  - Haemoglobin decreased [Recovered/Resolved]
